FAERS Safety Report 13542611 (Version 1)
Quarter: 2017Q2

REPORT INFORMATION
  Report Type: Spontaneous
  Country: US (occurrence: US)
  Receive Date: 20170512
  Receipt Date: 20170512
  Transmission Date: 20170830
  Serious: Yes (Death, Other)
  Sender: FDA-Public Use
  Company Number: US-ROCHE-716648

PATIENT
  Sex: Male
  Weight: 117 kg

DRUGS (1)
  1. AVASTIN [Suspect]
     Active Substance: BEVACIZUMAB
     Indication: OLIGODENDROGLIOMA
     Dosage: FREQUENCY REPORTED AS: X 1DOSE
     Route: 065

REACTIONS (2)
  - Cerebrovascular accident [Unknown]
  - Haemorrhagic stroke [Fatal]
